FAERS Safety Report 6301063-9 (Version None)
Quarter: 2009Q3

REPORT INFORMATION
  Report Type: 
  Country: None (occurrence: None)
  Receive Date: 20090807
  Receipt Date: 20090805
  Transmission Date: 20100115
  Serious: Yes (Life-Threatening)
  Sender: FDA-Public Use
  Company Number: JP-WYE-H10465609

PATIENT
  Age: 80 Year
  Sex: Male

DRUGS (1)
  1. ZOSYN [Suspect]
     Route: 041

REACTIONS (1)
  - GASTROINTESTINAL HAEMORRHAGE [None]
